FAERS Safety Report 21419789 (Version 1)
Quarter: 2022Q4

REPORT INFORMATION
  Report Type: Spontaneous
  Country: US (occurrence: None)
  Receive Date: 20221005
  Receipt Date: 20221005
  Transmission Date: 20230113
  Serious: Yes (Death)
  Sender: FDA-Public Use
  Company Number: None

PATIENT
  Age: 68 Year
  Sex: Male
  Weight: 104.33 kg

DRUGS (10)
  1. PROMACTA [Suspect]
     Active Substance: ELTROMBOPAG OLAMINE
     Indication: Myelodysplastic syndrome
     Dosage: FREQUENCY : DAILY;?
     Route: 048
     Dates: start: 202004, end: 20221004
  2. ALLOPURINOL [Concomitant]
     Active Substance: ALLOPURINOL
  3. HUMALOG [Concomitant]
     Active Substance: INSULIN LISPRO
  4. JAKAFI [Concomitant]
     Active Substance: RUXOLITINIB
  5. LABETALOL [Concomitant]
     Active Substance: LABETALOL\LABETALOL HYDROCHLORIDE
  6. LANTUS SOLOSTAR [Concomitant]
     Active Substance: INSULIN GLARGINE
  7. NIFEDIPINE [Concomitant]
     Active Substance: NIFEDIPINE
  8. PANTOPRAZOLE [Concomitant]
     Active Substance: PANTOPRAZOLE
  9. SIMVASTATIN [Concomitant]
     Active Substance: SIMVASTATIN
  10. TORSEMIDE [Concomitant]
     Active Substance: TORSEMIDE

REACTIONS (1)
  - Death [None]

NARRATIVE: CASE EVENT DATE: 20221004
